FAERS Safety Report 14518166 (Version 1)
Quarter: 2018Q1

REPORT INFORMATION
  Report Type: Spontaneous
  Country: US (occurrence: US)
  Receive Date: 20180212
  Receipt Date: 20180212
  Transmission Date: 20180509
  Serious: No
  Sender: FDA-Public Use
  Company Number: US-PFIZER INC-2018059047

PATIENT
  Age: 66 Year
  Sex: Female
  Weight: 66 kg

DRUGS (3)
  1. LYRICA [Concomitant]
     Active Substance: PREGABALIN
     Indication: NEURALGIA
     Dosage: 75 MG, 1X/DAY
     Dates: start: 201801
  2. GABAPENTIN. [Concomitant]
     Active Substance: GABAPENTIN
     Indication: NEURALGIA
     Dosage: 3 PILLS IN THE MORNING AND 3 PILLS AT LUNCH
     Dates: start: 201712
  3. CELEBREX [Suspect]
     Active Substance: CELECOXIB
     Indication: NEURALGIA
     Dosage: UNK, 2X/DAY
     Dates: end: 20180203

REACTIONS (2)
  - Drug ineffective for unapproved indication [Unknown]
  - Diarrhoea [Unknown]
